FAERS Safety Report 5445205-6 (Version None)
Quarter: 2007Q3

REPORT INFORMATION
  Report Type: 
  Country: None (occurrence: None)
  Receive Date: 20070730
  Receipt Date: 20070523
  Transmission Date: 20080115
  Serious: Yes (Hospitalization)
  Sender: FDA-Public Use
  Company Number: 240710

PATIENT
  Age: 15 Year
  Sex: Female
  Weight: 70 kg

DRUGS (4)
  1. RITUXAN [Suspect]
     Indication: LUPUS NEPHRITIS
     Dates: start: 20041001
  2. CYCLOPHOSPHAMIDE [Concomitant]
  3. PREDNISONE TAB [Concomitant]
  4. MYCOPHENOLATE (MYCOPHENOLATE MOFETIL) [Concomitant]

REACTIONS (4)
  - IMMUNOGLOBULINS ABNORMAL [None]
  - LYMPHOPENIA [None]
  - OSTEOMYELITIS [None]
  - SEPTIC SHOCK [None]
